FAERS Safety Report 15988935 (Version 2)
Quarter: 2019Q1

REPORT INFORMATION
  Report Type: Spontaneous
  Country: US (occurrence: US)
  Receive Date: 20190221
  Receipt Date: 20190312
  Transmission Date: 20190418
  Serious: Yes (Other)
  Sender: FDA-Public Use
  Company Number: US-JNJFOC-20190202858

PATIENT
  Sex: Female
  Weight: 75.75 kg

DRUGS (1)
  1. INVEGA SUSTENNA [Suspect]
     Active Substance: PALIPERIDONE PALMITATE
     Indication: SCHIZOPHRENIA
     Route: 030
     Dates: start: 201810, end: 201810

REACTIONS (10)
  - Amenorrhoea [Not Recovered/Not Resolved]
  - Mood altered [Not Recovered/Not Resolved]
  - Cognitive disorder [Not Recovered/Not Resolved]
  - Amnesia [Not Recovered/Not Resolved]
  - Insomnia [Not Recovered/Not Resolved]
  - Constipation [Unknown]
  - Hallucination, auditory [Not Recovered/Not Resolved]
  - Agitation [Not Recovered/Not Resolved]
  - Staphylococcal infection [Recovered/Resolved]
  - Inadequate diet [Not Recovered/Not Resolved]

NARRATIVE: CASE EVENT DATE: 2018
